FAERS Safety Report 9934953 (Version 1)
Quarter: 2014Q1

REPORT INFORMATION
  Report Type: Spontaneous
  Country: US (occurrence: US)
  Receive Date: 20140228
  Receipt Date: 20140228
  Transmission Date: 20141002
  Serious: No
  Sender: FDA-Public Use
  Company Number: US-ASTRAZENECA-2013SE69972

PATIENT
  Age: 65 Year
  Sex: Male
  Weight: 99.8 kg

DRUGS (10)
  1. TOPROL-XL [Suspect]
     Indication: HYPERTENSION
     Route: 048
     Dates: start: 2004, end: 2011
  2. TOPROL-XL [Suspect]
     Indication: HYPERTENSION
     Dosage: 50 MG DAILY, GENERIC
     Route: 048
     Dates: start: 2011, end: 2011
  3. TOPROL-XL [Suspect]
     Indication: HYPERTENSION
     Route: 048
     Dates: start: 2011
  4. NITRO PATCH [Concomitant]
     Indication: CARDIAC DISORDER
     Dosage: UNK DAILY
     Route: 061
  5. LOVAZA [Concomitant]
     Indication: SUPPLEMENTATION THERAPY
     Dosage: UNK DAILY
     Route: 048
  6. GLYBURIDE [Concomitant]
     Indication: DIABETES MELLITUS
     Route: 048
  7. EXFORGE [Concomitant]
     Indication: HYPERTENSION
     Dosage: 5/320MG DAILY
     Route: 048
  8. LIVALO [Concomitant]
     Indication: BLOOD CHOLESTEROL ABNORMAL
     Route: 048
  9. POTASSIUM [Concomitant]
     Indication: SUPPLEMENTATION THERAPY
     Route: 048
  10. FUROSEMIDE [Concomitant]
     Indication: FLUID RETENTION
     Route: 048

REACTIONS (3)
  - Blood pressure increased [Recovered/Resolved]
  - Headache [Recovered/Resolved]
  - Drug ineffective [Unknown]
